FAERS Safety Report 9091017 (Version 4)
Quarter: 2013Q2

REPORT INFORMATION
  Report Type: Spontaneous
  Country: US (occurrence: US)
  Receive Date: 20130201
  Receipt Date: 20130423
  Transmission Date: 20140414
  Serious: No
  Sender: FDA-Public Use
  Company Number: US-009507513-1301USA014816

PATIENT
  Sex: Female

DRUGS (3)
  1. PEG-INTRON [Suspect]
     Indication: CHRONIC HEPATITIS C
     Dosage: UNK
     Dates: start: 20130115
  2. REBETOL [Suspect]
     Indication: CHRONIC HEPATITIS C
     Dosage: UNK
     Dates: start: 20130115
  3. VICTRELIS [Suspect]
     Indication: CHRONIC HEPATITIS C
     Dosage: UNK
     Route: 048
     Dates: start: 20130213

REACTIONS (15)
  - Bone disorder [Unknown]
  - Respiratory disorder [Unknown]
  - Constipation [Unknown]
  - Gastrointestinal disorder [Unknown]
  - Anaemia [Unknown]
  - Nightmare [Unknown]
  - Tremor [Unknown]
  - Anaemia [Unknown]
  - Insomnia [Unknown]
  - Insomnia [Unknown]
  - Fatigue [Unknown]
  - Headache [Unknown]
  - Haemoglobin decreased [Unknown]
  - Dizziness [Unknown]
  - Fatigue [Unknown]
